FAERS Safety Report 8586328-2 (Version None)
Quarter: 2012Q3

REPORT INFORMATION
  Report Type: 
  Country: None (occurrence: None)
  Receive Date: 20120810
  Receipt Date: 20120730
  Transmission Date: 20120928
  Serious: Yes (Hospitalization)
  Sender: FDA-Public Use
  Company Number: CA-ELI_LILLY_AND_COMPANY-CA201207009140

PATIENT
  Age: 66 Year
  Sex: Male
  Weight: 83.492 kg

DRUGS (15)
  1. CRESTOR [Concomitant]
     Indication: DYSLIPIDAEMIA
  2. CISPLATIN [Suspect]
     Dosage: UNK
     Route: 042
  3. AMLODIPINE [Concomitant]
     Indication: HYPERTENSION
  4. SYNTHROID [Concomitant]
     Indication: HYPOTHYROIDISM
  5. DEXAMETHASONE [Suspect]
     Indication: NON-HODGKIN'S LYMPHOMA
     Dosage: UNK
     Route: 048
  6. RAMIPRIL [Concomitant]
     Indication: HYPERTENSION
  7. RITUXIMAB [Suspect]
     Dosage: 757 MG, DAY 1 OF EACH 21 DAY CYCLE
     Route: 042
  8. HYDROMORPHONE HYDROCHLORIDE [Concomitant]
     Indication: BACK PAIN
  9. GEMCITABINE HYDROCHLORIDE [Suspect]
     Dosage: 1010 MG, DAY 1 OF EACH 21 DAY CYCLE
     Route: 042
  10. OTHER PHARMA COMPANY INV DRUG [Suspect]
     Indication: NON-HODGKIN'S LYMPHOMA
     Dosage: 1.62 MG, DAY 2 OF EACH 21 DAY CYCLE
     Route: 042
     Dates: start: 20120228
  11. OTHER PHARMA COMPANY INV DRUG [Suspect]
     Dosage: 1.62 MG, DAY 2 OF EACH 21 DAY CYCLE
     Route: 042
  12. GEMCITABINE HYDROCHLORIDE [Suspect]
     Indication: NON-HODGKIN'S LYMPHOMA
     Dosage: 1010 MG, DAY 1 OF EACH 21 DAY CYCLE
     Route: 042
     Dates: start: 20120228
  13. CISPLATIN [Suspect]
     Indication: NON-HODGKIN'S LYMPHOMA
     Dosage: UNK
     Route: 042
  14. RITUXIMAB [Suspect]
     Indication: NON-HODGKIN'S LYMPHOMA
     Dosage: 757 MG, DAY 1 OF EACH 21 DAY CYCLE
     Route: 042
     Dates: start: 20120228
  15. DEXAMETHASONE [Suspect]
     Dosage: UNK
     Route: 048

REACTIONS (1)
  - PNEUMONIA [None]
